FAERS Safety Report 8889786 (Version 2)
Quarter: 2012Q4

REPORT INFORMATION
  Report Type: 
  Country: US (occurrence: US)
  Receive Date: 20121107
  Receipt Date: 20121119
  Transmission Date: 20130627
  Serious: Yes (Hospitalization)
  Sender: FDA-Public Use
  Company Number: US-ACTELION-A-NJ2012-74153

PATIENT
  Age: 60 Year
  Sex: Female

DRUGS (2)
  1. VENTAVIS [Suspect]
     Indication: PULMONARY ARTERIAL HYPERTENSION
     Dosage: 5 mcg 6xday
     Route: 055
  2. SILDENAFIL [Concomitant]

REACTIONS (2)
  - Electrolyte imbalance [Recovered/Resolved]
  - Chest pain [Recovered/Resolved]
